FAERS Safety Report 6483126-0 (Version None)
Quarter: 2009Q4

REPORT INFORMATION
  Report Type: 
  Country: None (occurrence: None)
  Receive Date: 20091209
  Receipt Date: 20091130
  Transmission Date: 20100525
  Serious: Yes (Death)
  Sender: FDA-Public Use
  Company Number: KR-ROCHE-672100

PATIENT
  Age: 54 Year
  Sex: Female

DRUGS (1)
  1. TAMIFLU [Suspect]
     Indication: H1N1 INFLUENZA
     Dosage: INDICATION REPORTED AS TREATMENT
     Route: 065
     Dates: start: 20091030, end: 20091030

REACTIONS (2)
  - DISEASE PROGRESSION [None]
  - H1N1 INFLUENZA [None]
